FAERS Safety Report 5249605-9 (Version None)
Quarter: 2007Q1

REPORT INFORMATION
  Report Type: 
  Country: None (occurrence: None)
  Receive Date: 20070228
  Receipt Date: 20060410
  Transmission Date: 20070707
  Serious: No
  Sender: FDA-Public Use
  Company Number: S2006US05826

PATIENT
  Sex: Female

DRUGS (1)
  1. IMITREX [Suspect]
     Route: 065

REACTIONS (1)
  - CHEST DISCOMFORT [None]
